FAERS Safety Report 18521366 (Version 1)
Quarter: 2020Q4

REPORT INFORMATION
  Report Type: Spontaneous
  Country: JP (occurrence: JP)
  Receive Date: 20201119
  Receipt Date: 20201119
  Transmission Date: 20210114
  Serious: Yes (Death, Life-Threatening, Hospitalization, Other)
  Sender: FDA-Public Use
  Company Number: JP-ACCORD-208395

PATIENT
  Age: 53 Year
  Sex: Male

DRUGS (2)
  1. CARBOPLATIN. [Suspect]
     Active Substance: CARBOPLATIN
     Indication: LUNG SQUAMOUS CELL CARCINOMA STAGE III
     Dates: start: 202005, end: 202007
  2. TS-1 [Suspect]
     Active Substance: GIMERACIL\OTERACIL\TEGAFUR
     Indication: LUNG SQUAMOUS CELL CARCINOMA STAGE III
     Dates: start: 202005, end: 202007

REACTIONS (2)
  - Metastases to skin [Unknown]
  - Disseminated varicella zoster virus infection [Recovering/Resolving]

NARRATIVE: CASE EVENT DATE: 2020
